FAERS Safety Report 8156671-X (Version None)
Quarter: 2012Q1

REPORT INFORMATION
  Report Type: 
  Country: None (occurrence: None)
  Receive Date: 20120222
  Receipt Date: 20120214
  Transmission Date: 20120608
  Serious: Yes (Hospitalization, Other)
  Sender: FDA-Public Use
  Company Number: US-BAYER-2011-096685

PATIENT
  Sex: Female

DRUGS (7)
  1. YASMIN [Suspect]
  2. PRIMACARE [Concomitant]
     Dosage: 1 UNK, QD
     Route: 048
     Dates: start: 20060818, end: 20061011
  3. YASMIN [Suspect]
     Indication: PREMENSTRUAL SYNDROME
     Dosage: UNK
     Dates: start: 20021101
  4. PRIMACARE [Concomitant]
     Dosage: 1 DF, QD
     Route: 048
     Dates: start: 20060818, end: 20070422
  5. YAZ [Suspect]
     Indication: PREMENSTRUAL SYNDROME
     Dosage: UNK
     Dates: start: 20060501
  6. YAZ [Suspect]
  7. AZITHROMYCIN [Concomitant]
     Dosage: 500 MG, UNK
     Route: 048
     Dates: start: 20061204, end: 20061207

REACTIONS (6)
  - CHOLELITHIASIS [None]
  - INJURY [None]
  - CHOLECYSTITIS [None]
  - EMOTIONAL DISTRESS [None]
  - PAIN [None]
  - BILIARY COLIC [None]
